FAERS Safety Report 23388654 (Version 1)
Quarter: 2024Q1

REPORT INFORMATION
  Report Type: Spontaneous
  Country: US (occurrence: US)
  Receive Date: 20240110
  Receipt Date: 20240110
  Transmission Date: 20240410
  Serious: Yes (Other)
  Sender: FDA-Public Use
  Company Number: US-BRISTOL-MYERS SQUIBB COMPANY-2024-004384

PATIENT
  Age: 49 Year
  Sex: Female
  Weight: 170.1 kg

DRUGS (1)
  1. REVLIMID [Suspect]
     Active Substance: LENALIDOMIDE
     Indication: Plasma cell myeloma
     Dosage: 2WKSON,2WKOFF
     Route: 048

REACTIONS (4)
  - Dry mouth [Unknown]
  - Neuropathy peripheral [Unknown]
  - Tongue ulceration [Unknown]
  - Off label use [Unknown]
